FAERS Safety Report 9548356 (Version 1)
Quarter: 2013Q2

REPORT INFORMATION
  Report Type: Spontaneous
  Country: US (occurrence: None)
  Receive Date: 20130627
  Receipt Date: 20130627
  Transmission Date: 20140414
  Serious: Yes (Other)
  Sender: FDA-Public Use
  Company Number: 1000043694

PATIENT
  Age: 67 Year
  Sex: Female

DRUGS (5)
  1. LINZESS [Suspect]
     Indication: CONSTIPATION
     Dosage: 145 MCG (145 MCG, 1 IN 1 D), ORAL
     Route: 048
     Dates: start: 201302
  2. CHANTIX (VARENICLINE TARTRATE) (VARENICLINE TARTRATE) [Concomitant]
  3. EVISTA (RALOXIFENE HYDROCHLORIDE) (RALOXIFENE HYDROCHLORIDE) [Concomitant]
  4. VESICARE (SOLIFENACIN SUCCINATE) (SOLIFENACIN SUCCINATE) [Concomitant]
  5. ATENOLOL (ATENOLOL) (ATENOLOL) [Concomitant]

REACTIONS (1)
  - Diarrhoea [None]
